FAERS Safety Report 6263082-0 (Version None)
Quarter: 2009Q3

REPORT INFORMATION
  Report Type: 
  Country: None (occurrence: None)
  Receive Date: 20090708
  Receipt Date: 20090708
  Transmission Date: 20100115
  Serious: Yes (Other)
  Sender: FDA-Public Use
  Company Number: None

PATIENT
  Age: 54 Year
  Sex: Female
  Weight: 81.6475 kg

DRUGS (1)
  1. ZICAM NOSE SPRAY [Suspect]
     Indication: NASOPHARYNGITIS
     Dosage: ONE-TWO SPRAY ONE-TWO-NONE A DAY 5-8 DAYS
     Dates: start: 20011201

REACTIONS (2)
  - ANOSMIA [None]
  - HYPOSMIA [None]
